FAERS Safety Report 4499524-0 (Version None)
Quarter: 2004Q4

REPORT INFORMATION
  Report Type: 
  Country: None (occurrence: None)
  Receive Date: 20040928
  Receipt Date: 20040811
  Transmission Date: 20050328
  Serious: No
  Sender: FDA-Public Use
  Company Number: 04P-163-0251585-00

PATIENT
  Age: 63 Year
  Sex: Male
  Weight: 88.4514 kg

DRUGS (6)
  1. HUMIRA [Suspect]
     Indication: RHEUMATOID ARTHRITIS
     Dosage: 40 MG, 1 IN 2 WK, SUBCUTANEOUS
     Route: 058
     Dates: start: 20030101, end: 20040601
  2. TOPROL-XL [Concomitant]
  3. IRBESARTAN [Concomitant]
  4. PREDNISONE [Concomitant]
  5. DIURETICS [Concomitant]
  6. CHROMIUM [Concomitant]

REACTIONS (13)
  - ARTHRITIS [None]
  - BACK DISORDER [None]
  - BLOOD PRESSURE INCREASED [None]
  - DIPLOPIA [None]
  - DIZZINESS [None]
  - FLATULENCE [None]
  - HEADACHE [None]
  - INJECTION SITE ERYTHEMA [None]
  - INJECTION SITE HAEMORRHAGE [None]
  - INJECTION SITE NODULE [None]
  - INJECTION SITE PRURITUS [None]
  - INJECTION SITE SWELLING [None]
  - OEDEMA PERIPHERAL [None]
